FAERS Safety Report 8047028-0 (Version None)
Quarter: 2012Q1

REPORT INFORMATION
  Report Type: 
  Country: None (occurrence: None)
  Receive Date: 20120116
  Receipt Date: 20120111
  Transmission Date: 20120608
  Serious: No
  Sender: FDA-Public Use
  Company Number: US-BAYER-2012-004129

PATIENT
  Age: 34 Year
  Sex: Male
  Weight: 68.027 kg

DRUGS (3)
  1. CREAM FOR FACE [Concomitant]
  2. VOLUMEN [Concomitant]
     Dosage: 2 BOTTLES
     Route: 048
     Dates: start: 20120111, end: 20120111
  3. ULTRAVIST 150 [Suspect]
     Indication: COMPUTERISED TOMOGRAM ABDOMEN
     Dosage: 102 ML, ONCE
     Route: 042
     Dates: start: 20120111, end: 20120111

REACTIONS (1)
  - NAUSEA [None]
